FAERS Safety Report 5491201-2 (Version None)
Quarter: 2007Q4

REPORT INFORMATION
  Report Type: 
  Country: None (occurrence: None)
  Receive Date: 20071019
  Receipt Date: 20071011
  Transmission Date: 20080405
  Serious: Yes (Disabling)
  Sender: FDA-Public Use
  Company Number: HR-ABBOTT-07P-216-0420391-00

PATIENT
  Sex: Female

DRUGS (2)
  1. MAKCIN SR [Suspect]
     Indication: BRONCHITIS
     Route: 048
     Dates: start: 20070814, end: 20070818
  2. CEFUROXIME SODIUM [Concomitant]
     Indication: DRUG USE FOR UNKNOWN INDICATION

REACTIONS (8)
  - ALKALOSIS [None]
  - DISCOMFORT [None]
  - HYPERVENTILATION [None]
  - PARAESTHESIA [None]
  - SELF-INJURIOUS IDEATION [None]
  - SUFFOCATION FEELING [None]
  - TREMOR [None]
  - VERTIGO [None]
